FAERS Safety Report 8036026-9 (Version None)
Quarter: 2012Q1

REPORT INFORMATION
  Report Type: 
  Country: None (occurrence: None)
  Receive Date: 20120111
  Receipt Date: 20120103
  Transmission Date: 20120608
  Serious: No
  Sender: FDA-Public Use
  Company Number: FR-ASTRAZENECA-2011SE72055

PATIENT
  Age: 535 Month
  Sex: Female
  Weight: 70 kg

DRUGS (5)
  1. QUETIAPINE FUMARATE [Suspect]
     Route: 048
     Dates: start: 20111115, end: 20111115
  2. ESCITALOPRAM OXALATE [Concomitant]
     Indication: BIPOLAR DISORDER
  3. ACETAMINOPHEN [Concomitant]
  4. QUETIAPINE FUMARATE [Suspect]
     Route: 048
     Dates: start: 20111116, end: 20111203
  5. QUETIAPINE FUMARATE [Suspect]
     Indication: BIPOLAR DISORDER
     Route: 048
     Dates: start: 20111114, end: 20111114

REACTIONS (8)
  - TOOTHACHE [None]
  - VISUAL IMPAIRMENT [None]
  - FLATULENCE [None]
  - FATIGUE [None]
  - MALAISE [None]
  - SPEECH DISORDER [None]
  - CONSTIPATION [None]
  - SWOLLEN TONGUE [None]
